FAERS Safety Report 23094665 (Version 2)
Quarter: 2023Q4

REPORT INFORMATION
  Report Type: Report from Study
  Country: BR (occurrence: BR)
  Receive Date: 20231023
  Receipt Date: 20231027
  Transmission Date: 20240110
  Serious: Yes (Life-Threatening, Other)
  Sender: FDA-Public Use
  Company Number: BR-BRISTOL-MYERS SQUIBB COMPANY-2023-147285

PATIENT
  Age: 61 Year
  Sex: Male

DRUGS (8)
  1. POMALIDOMIDE [Suspect]
     Active Substance: POMALIDOMIDE
     Indication: Plasma cell myeloma refractory
     Route: 048
     Dates: start: 20230601, end: 20230621
  2. POMALIDOMIDE [Suspect]
     Active Substance: POMALIDOMIDE
     Route: 048
     Dates: start: 20230713, end: 20230719
  3. DEXAMETHASONE [Suspect]
     Active Substance: DEXAMETHASONE
     Indication: Plasma cell myeloma refractory
     Route: 048
     Dates: start: 20230601, end: 20230629
  4. DEXAMETHASONE [Suspect]
     Active Substance: DEXAMETHASONE
     Route: 048
     Dates: start: 20230713
  5. BELANTAMAB MAFODOTIN [Suspect]
     Active Substance: BELANTAMAB MAFODOTIN
     Indication: Plasma cell myeloma refractory
     Route: 042
     Dates: start: 20230601
  6. NIROGACESTAT [Suspect]
     Active Substance: NIROGACESTAT
     Indication: Plasma cell myeloma refractory
     Route: 048
     Dates: start: 20230530
  7. NIROGACESTAT [Suspect]
     Active Substance: NIROGACESTAT
     Route: 048
     Dates: start: 20230606
  8. NIROGACESTAT [Suspect]
     Active Substance: NIROGACESTAT
     Route: 048
     Dates: start: 20230607

REACTIONS (1)
  - Pulmonary sepsis [Recovered/Resolved with Sequelae]

NARRATIVE: CASE EVENT DATE: 20231010
